FAERS Safety Report 17619025 (Version 1)
Quarter: 2020Q2

REPORT INFORMATION
  Report Type: Spontaneous
  Country: US (occurrence: US)
  Receive Date: 20200402
  Receipt Date: 20200402
  Transmission Date: 20200713
  Serious: No
  Sender: FDA-Public Use
  Company Number: US-AMAG PHARMACEUTICALS, INC.-AMAG202001153

PATIENT
  Sex: Female

DRUGS (2)
  1. INTRAROSA [Suspect]
     Active Substance: PRASTERONE
     Indication: UTERINE CANCER
  2. INTRAROSA [Suspect]
     Active Substance: PRASTERONE
     Indication: SOFT TISSUE DISORDER
     Route: 067

REACTIONS (3)
  - Vaginal haemorrhage [Recovered/Resolved]
  - Drug effective for unapproved indication [Unknown]
  - Contraindicated product prescribed [Unknown]

NARRATIVE: CASE EVENT DATE: 202003
